FAERS Safety Report 18840743 (Version 4)
Quarter: 2025Q1

REPORT INFORMATION
  Report Type: Spontaneous
  Country: CA (occurrence: CA)
  Receive Date: 20210204
  Receipt Date: 20250131
  Transmission Date: 20250408
  Serious: Yes (Hospitalization, Other)
  Sender: SPECGX
  Company Number: CA-SPECGX-T202100164

PATIENT
  Age: 11 Year
  Sex: Male

DRUGS (64)
  1. METHADOSE [Suspect]
     Active Substance: METHADONE HYDROCHLORIDE
     Indication: Back pain
     Dosage: 2 MILLIGRAM, TID
     Route: 048
     Dates: start: 2016
  2. METHADOSE [Suspect]
     Active Substance: METHADONE HYDROCHLORIDE
     Indication: Child abuse
  3. GABAPENTIN [Suspect]
     Active Substance: GABAPENTIN
     Indication: Pain management
     Dosage: 600 MILLIGRAM, TID
     Route: 048
     Dates: start: 2016
  4. GABAPENTIN [Suspect]
     Active Substance: GABAPENTIN
     Indication: Back pain
  5. GABAPENTIN [Suspect]
     Active Substance: GABAPENTIN
     Indication: Child abuse
  6. LORAZEPAM [Suspect]
     Active Substance: LORAZEPAM
     Indication: Seizure
     Route: 060
     Dates: start: 2016
  7. LORAZEPAM [Suspect]
     Active Substance: LORAZEPAM
     Indication: Pain management
     Route: 060
     Dates: start: 2016
  8. LORAZEPAM [Suspect]
     Active Substance: LORAZEPAM
     Indication: Muscle spasms
  9. LORAZEPAM [Suspect]
     Active Substance: LORAZEPAM
     Indication: Back pain
  10. LORAZEPAM [Suspect]
     Active Substance: LORAZEPAM
     Indication: Child abuse
  11. HYDROMORPHONE [Suspect]
     Active Substance: HYDROMORPHONE
     Indication: Pain management
     Route: 065
     Dates: start: 2016
  12. HYDROMORPHONE [Suspect]
     Active Substance: HYDROMORPHONE
     Indication: Back pain
  13. HYDROMORPHONE [Suspect]
     Active Substance: HYDROMORPHONE
     Indication: Child abuse
  14. CLOBAZAM [Suspect]
     Active Substance: CLOBAZAM
     Indication: Back pain
     Dosage: 20 MILLIGRAM, BID
     Route: 048
  15. CLOBAZAM [Suspect]
     Active Substance: CLOBAZAM
     Indication: Child abuse
  16. ARIPIPRAZOLE [Suspect]
     Active Substance: ARIPIPRAZOLE
     Indication: Child abuse
     Dosage: 2 MILLIGRAM, TID
     Route: 048
  17. VITAMIN C [Suspect]
     Active Substance: ASCORBIC ACID
     Indication: Child abuse
     Dosage: 1500 MILLIGRAM, QD
     Route: 048
  18. BACLOFEN [Suspect]
     Active Substance: BACLOFEN
     Indication: Child abuse
     Dosage: 20 MILLIGRAM, TID
     Route: 048
  19. BISACODYL [Suspect]
     Active Substance: BISACODYL
     Indication: Child abuse
     Dosage: 5 MILLIGRAM, QD (AS REQUIRED)
     Route: 048
  20. CELECOXIB [Suspect]
     Active Substance: CELECOXIB
     Indication: Pain management
     Dosage: 100 MILLIGRAM, BID
     Route: 048
     Dates: start: 2016
  21. CELECOXIB [Suspect]
     Active Substance: CELECOXIB
     Indication: Back pain
  22. CELECOXIB [Suspect]
     Active Substance: CELECOXIB
     Indication: Child abuse
  23. CLONIDINE [Suspect]
     Active Substance: CLONIDINE
     Indication: Product used for unknown indication
     Dosage: 0.1 MILLIGRAM, QD (0.1 MG EVERY MORNING AND 0.5 MG EVERY EVENING)
     Route: 048
  24. CLONIDINE [Suspect]
     Active Substance: CLONIDINE
     Indication: Child abuse
     Dosage: 0.05 MILLIGRAM, QD (0.1 MG EVERY MORNING AND 0.5 MG EVERY EVENING)
     Route: 048
  25. DIMENHYDRINATE [Suspect]
     Active Substance: DIMENHYDRINATE
     Indication: Constipation
     Dosage: 25 MILLIGRAM, QD (AS REQUIRED)
     Route: 048
  26. DIMENHYDRINATE [Suspect]
     Active Substance: DIMENHYDRINATE
     Indication: Child abuse
     Dosage: 12.5 MILLIGRAM, Q6H
     Route: 048
  27. DIMENHYDRINATE [Suspect]
     Active Substance: DIMENHYDRINATE
     Dosage: 20 MILLIGRAM, QD (AS REQUIRED)
  28. DIPHENHYDRAMINE [Suspect]
     Active Substance: DIPHENHYDRAMINE
     Indication: Pruritus
     Dosage: 12.5 MILLIGRAM, Q6H (AS REQUIRED)
     Route: 048
  29. DIPHENHYDRAMINE [Suspect]
     Active Substance: DIPHENHYDRAMINE
     Indication: Child abuse
  30. ACETAMINOPHEN\METHOCARBAMOL [Suspect]
     Active Substance: ACETAMINOPHEN\METHOCARBAMOL
     Indication: Product used for unknown indication
     Dosage: 400 MILLIGRAM, BID
     Route: 065
  31. FISH OIL [Suspect]
     Active Substance: FISH OIL
     Indication: Product used for unknown indication
     Dosage: 200 MILLIGRAM, QD
     Route: 065
  32. FLUOXETINE [Suspect]
     Active Substance: FLUOXETINE HYDROCHLORIDE
     Indication: Child abuse
     Dosage: 20 MILLIGRAM, QD
     Route: 048
  33. HYDROXYCHLOROQUINE [Suspect]
     Active Substance: HYDROXYCHLOROQUINE
     Indication: Pain management
     Dosage: 400 MILLIGRAM, QD
     Route: 048
  34. HYDROXYCHLOROQUINE [Suspect]
     Active Substance: HYDROXYCHLOROQUINE
     Indication: Child abuse
  35. KETOROLAC [Suspect]
     Active Substance: KETOROLAC TROMETHAMINE
     Indication: Pain
     Dosage: 20 MILLIGRAM, Q6H (AS REQUIRED)
     Route: 048
  36. KETOROLAC [Suspect]
     Active Substance: KETOROLAC TROMETHAMINE
     Indication: Child abuse
  37. LEUPROLIDE [Suspect]
     Active Substance: LEUPROLIDE
     Indication: Child abuse
     Dosage: 7.5 MILLIGRAM, MONTHLY
     Route: 030
  38. MELATONIN [Suspect]
     Active Substance: MELATONIN
     Indication: Sleep deficit
     Dosage: 10 MILLIGRAM, QHS (AS REQUIRED)
     Route: 048
  39. MELATONIN [Suspect]
     Active Substance: MELATONIN
     Indication: Sleep disorder
  40. MELATONIN [Suspect]
     Active Substance: MELATONIN
     Indication: Child abuse
  41. METHOCARBAMOL [Suspect]
     Active Substance: METHOCARBAMOL
     Indication: Back pain
     Route: 065
  42. MONTELUKAST [Suspect]
     Active Substance: MONTELUKAST
     Indication: Child abuse
     Dosage: 10 MILLIGRAM, QD
     Route: 048
  43. PANTOPRAZOLE [Suspect]
     Active Substance: PANTOPRAZOLE
     Indication: Child abuse
     Dosage: 40 MILLIGRAM, QD
     Route: 048
  44. PHENOBARBITAL [Suspect]
     Active Substance: PHENOBARBITAL
     Indication: Child abuse
     Dosage: 30 MILLIGRAM, BID
     Route: 048
  45. POLYETHYLENE GLYCOL [Suspect]
     Active Substance: POLYETHYLENE GLYCOL
     Indication: Product used for unknown indication
     Dosage: 30 MILLIGRAM, BID
     Route: 048
  46. RANITIDINE [Suspect]
     Active Substance: RANITIDINE
     Indication: Child abuse
     Dosage: 150 MILLIGRAM, QD
     Route: 048
  47. ALBUTEROL [Suspect]
     Active Substance: ALBUTEROL
     Indication: Child abuse
     Dosage: 100 MICROGRAM, Q4H (AS REQUIRED)
  48. ALBUTEROL [Suspect]
     Active Substance: ALBUTEROL
     Dosage: 2 DOSAGE FORM, Q4H (100 MCG PER ACTUATION, 2 PUFFS EVERY 4 HOURS AS REQUIRED)
  49. VITAMIN D3 [Suspect]
     Active Substance: CHOLECALCIFEROL
     Indication: Vitamin supplementation
     Dosage: 2000 INTERNATIONAL UNIT, QD
     Route: 048
  50. VITAMIN D3 [Suspect]
     Active Substance: CHOLECALCIFEROL
     Indication: Child abuse
  51. POLYETHYLENE GLYCOL 3350 [Suspect]
     Active Substance: POLYETHYLENE GLYCOL 3350
     Indication: Product used for unknown indication
     Dosage: 30 MILLIGRAM, BID
     Route: 048
  52. POLYETHYLENE GLYCOL 3350 [Suspect]
     Active Substance: POLYETHYLENE GLYCOL 3350
     Indication: Child abuse
  53. ACETAMINOPHEN\METHOCARBAMOL [Suspect]
     Active Substance: ACETAMINOPHEN\METHOCARBAMOL
     Indication: Child abuse
     Route: 048
  54. ACETAMINOPHEN\METHOCARBAMOL [Suspect]
     Active Substance: ACETAMINOPHEN\METHOCARBAMOL
     Indication: Back pain
     Route: 048
     Dates: start: 2016
  55. ACETAMINOPHEN\METHOCARBAMOL [Suspect]
     Active Substance: ACETAMINOPHEN\METHOCARBAMOL
     Route: 048
     Dates: start: 2016
  56. DOCONEXENT [Suspect]
     Active Substance: DOCONEXENT
     Indication: Product used for unknown indication
     Route: 065
  57. ROBAXACET [Suspect]
     Active Substance: ACETAMINOPHEN\METHOCARBAMOL
     Indication: Back pain
     Dosage: 900 MILLIGRAM, QD
     Route: 048
  58. FISH OIL\OMEGA-3 FATTY ACIDS [Concomitant]
     Active Substance: FISH OIL\OMEGA-3 FATTY ACIDS
     Indication: Child abuse
     Route: 048
  59. FISH OIL\OMEGA-3 FATTY ACIDS [Concomitant]
     Active Substance: FISH OIL\OMEGA-3 FATTY ACIDS
     Route: 048
  60. CHOLECALCIFEROL [Concomitant]
     Active Substance: CHOLECALCIFEROL
     Indication: Product used for unknown indication
     Dosage: 200 INTERNATIONAL UNIT, QD
     Route: 048
  61. CHOLECALCIFEROL [Concomitant]
     Active Substance: CHOLECALCIFEROL
     Dosage: 2000 INTERNATIONAL UNIT, QD
     Route: 048
  62. ACETAMINOPHEN [Concomitant]
     Active Substance: ACETAMINOPHEN
     Indication: Product used for unknown indication
     Route: 065
  63. FLUTICASONE [Concomitant]
     Active Substance: FLUTICASONE
     Indication: Child abuse
     Dosage: 250 MICROGRAM, QD
  64. FLUTICASONE [Concomitant]
     Active Substance: FLUTICASONE
     Dosage: 2 DOSAGE FORM, QD

REACTIONS (9)
  - Victim of child abuse [Recovered/Resolved]
  - Respiratory depression [Recovered/Resolved]
  - Drug abuse [Recovered/Resolved]
  - Intentional product misuse [Unknown]
  - Drug dependence [Recovered/Resolved]
  - Product prescribing error [Recovered/Resolved]
  - Product use issue [Unknown]
  - Product use in unapproved indication [Unknown]
  - Drug ineffective [Unknown]
